FAERS Safety Report 13968486 (Version 1)
Quarter: 2017Q3

REPORT INFORMATION
  Report Type: Spontaneous
  Country: US (occurrence: US)
  Receive Date: 20170914
  Receipt Date: 20170914
  Transmission Date: 20171128
  Serious: No
  Sender: FDA-Public Use
  Company Number: US-BAYER-2017-175280

PATIENT
  Age: 58 Year
  Sex: Female

DRUGS (3)
  1. OMEPRAZOLE. [Concomitant]
     Active Substance: OMEPRAZOLE
     Dosage: UNK
  2. FISH OIL [Concomitant]
     Active Substance: FISH OIL
     Dosage: UNK
  3. MIRALAX [Suspect]
     Active Substance: POLYETHYLENE GLYCOL 3350
     Indication: COLONOSCOPY
     Dosage: 8.3 OZ MIXED WITH 64 OZ GATORADE
     Route: 048

REACTIONS (3)
  - Off label use [Unknown]
  - Inappropriate prescribing [Unknown]
  - Product use in unapproved indication [Unknown]

NARRATIVE: CASE EVENT DATE: 20170830
